FAERS Safety Report 4782564-1 (Version None)
Quarter: 2005Q3

REPORT INFORMATION
  Report Type: 
  Country: None (occurrence: None)
  Receive Date: 20050929
  Receipt Date: 20050323
  Transmission Date: 20060218
  Serious: No
  Sender: FDA-Public Use
  Company Number: US-GLAXOSMITHKLINE-A0551039A

PATIENT
  Age: 63 Year
  Sex: Female

DRUGS (4)
  1. COREG [Suspect]
     Dosage: 12.5MG PER DAY
     Route: 048
  2. ACE INHIBITOR [Concomitant]
  3. LASIX [Concomitant]
  4. SINGULAIR [Concomitant]

REACTIONS (2)
  - EYE IRRITATION [None]
  - LACRIMATION INCREASED [None]
